FAERS Safety Report 6898647-6 (Version None)
Quarter: 2010Q3

REPORT INFORMATION
  Report Type: 
  Country: None (occurrence: None)
  Receive Date: 20100729
  Receipt Date: 20100723
  Transmission Date: 20110219
  Serious: Yes (Other)
  Sender: FDA-Public Use
  Company Number: A0846984A

PATIENT
  Age: 40 Year
  Sex: Female

DRUGS (1)
  1. ORLISTAT [Suspect]
     Indication: PRODUCT USED FOR UNKNOWN INDICATION
     Dosage: / ORAL
     Route: 048
     Dates: start: 20091101

REACTIONS (11)
  - ABDOMINAL PAIN [None]
  - ACUTE HEPATIC FAILURE [None]
  - ANTINUCLEAR ANTIBODY POSITIVE [None]
  - ASTHENIA [None]
  - CHOLESTASIS [None]
  - FATIGUE [None]
  - HEPATIC NECROSIS [None]
  - HEPATO-LENTICULAR DEGENERATION [None]
  - INFLUENZA LIKE ILLNESS [None]
  - LETHARGY [None]
  - LIVER TRANSPLANT [None]
